FAERS Safety Report 9833852 (Version 1)
Quarter: 2014Q1

REPORT INFORMATION
  Report Type: Spontaneous
  Country: US (occurrence: US)
  Receive Date: 20140122
  Receipt Date: 20140122
  Transmission Date: 20141002
  Serious: No
  Sender: FDA-Public Use
  Company Number: US-BIOGENIDEC-2014BI005123

PATIENT
  Sex: Female

DRUGS (24)
  1. TECFIDERA [Suspect]
     Indication: MULTIPLE SCLEROSIS
     Route: 048
     Dates: start: 20131205
  2. ALPRAZOLAM [Concomitant]
  3. AMBIEN [Concomitant]
  4. AMITRIPTYLINE HCL [Concomitant]
  5. ASPIRIN [Concomitant]
  6. BI NATURAL [Concomitant]
  7. B12-ACTIVE [Concomitant]
  8. B6 NATURAL [Concomitant]
  9. BUTALBITAL-ASPIRIN-CAFFEINE [Concomitant]
  10. CALCIUM +D [Concomitant]
  11. ESCITALOPRAM OXALATE [Concomitant]
  12. FOLIC ACID [Concomitant]
  13. GABAPENTIN [Concomitant]
  14. HYDROCODONE-ACETAMINOPHEN [Concomitant]
  15. IMITREX [Concomitant]
  16. LASIX [Concomitant]
  17. METFORMIN HCI [Concomitant]
  18. MIDODRINE HCL [Concomitant]
  19. OMEPRAZOLE [Concomitant]
  20. POTASSIUM [Concomitant]
  21. SEROQUEL XR [Concomitant]
  22. SIMVASTATIN [Concomitant]
  23. SYNTHROID [Concomitant]
  24. TRAMADOL HCI [Concomitant]

REACTIONS (1)
  - Headache [Unknown]
